FAERS Safety Report 11157665 (Version 1)
Quarter: 2015Q2

REPORT INFORMATION
  Report Type: Spontaneous
  Country: US (occurrence: None)
  Receive Date: 20150601
  Receipt Date: 20150601
  Transmission Date: 20150821
  Serious: Yes (Other)
  Sender: FDA-Public Use
  Company Number: US-H14001-15-00805

PATIENT
  Age: 30 Year
  Sex: Male

DRUGS (2)
  1. NEOSTIGMINE (NEOSTIGMINE METILSULFATE) (UNKNOWN) (NEOSTIGMINE METILSULFATE) [Suspect]
     Active Substance: NEOSTIGMINE
     Indication: PRODUCT USED FOR UNKNOWN INDICATION
  2. GLYCOPYRROLATE (GLYCOPYRRONIUM) (UNKNOWN) (GLYCOPYRRONIUM) [Suspect]
     Active Substance: GLYCOPYRROLATE
     Indication: PRODUCT USED FOR UNKNOWN INDICATION

REACTIONS (4)
  - Sinus arrest [None]
  - Atrioventricular block complete [None]
  - Nodal rhythm [None]
  - Cardiac arrest [None]
